FAERS Safety Report 9356685 (Version 1)
Quarter: 2013Q2

REPORT INFORMATION
  Report Type: Spontaneous
  Country: JP (occurrence: JP)
  Receive Date: 20130619
  Receipt Date: 20130619
  Transmission Date: 20140414
  Serious: Yes (Disabling)
  Sender: FDA-Public Use
  Company Number: JP-009507513-1306JPN000123

PATIENT
  Age: 56 Year
  Sex: Female

DRUGS (1)
  1. ZETIA TABLETS 10MG [Suspect]
     Dosage: 10 MG, QD
     Route: 048
     Dates: start: 201208

REACTIONS (3)
  - Hypoaesthesia [Unknown]
  - Dizziness [Unknown]
  - Hypoaesthesia [Unknown]
